FAERS Safety Report 13772196 (Version 8)
Quarter: 2018Q1

REPORT INFORMATION
  Report Type: Spontaneous
  Country: US (occurrence: US)
  Receive Date: 20170720
  Receipt Date: 20180215
  Transmission Date: 20180508
  Serious: Yes (Other)
  Sender: FDA-Public Use
  Company Number: US-LUNDBECK-DKLU2033229

PATIENT
  Age: 47 Year
  Sex: Female

DRUGS (6)
  1. NORTHERA [Suspect]
     Active Substance: DROXIDOPA
     Indication: ORTHOSTATIC HYPOTENSION
     Route: 048
  2. NORTHERA [Suspect]
     Active Substance: DROXIDOPA
     Route: 048
     Dates: start: 20170621
  3. MIDODRINE [Concomitant]
     Active Substance: MIDODRINE
     Indication: PRODUCT USED FOR UNKNOWN INDICATION
     Route: 065
  4. NORTHERA [Suspect]
     Active Substance: DROXIDOPA
     Dosage: SCHEDULE B, TITRATION COMPLETE
     Route: 048
  5. NORTHERA [Suspect]
     Active Substance: DROXIDOPA
     Indication: AUTONOMIC NEUROPATHY
     Dosage: SCHEDULE B (TITRATING)
     Route: 048
     Dates: start: 20170620
  6. FLORINEF ACETATE [Concomitant]
     Active Substance: FLUDROCORTISONE ACETATE
     Indication: PRODUCT USED FOR UNKNOWN INDICATION
     Route: 065

REACTIONS (9)
  - Loss of consciousness [Unknown]
  - Syncope [Not Recovered/Not Resolved]
  - Malaise [Unknown]
  - Nausea [Unknown]
  - Sluggishness [Unknown]
  - Vomiting [Unknown]
  - Hypotension [Not Recovered/Not Resolved]
  - Drug dose omission [Not Recovered/Not Resolved]
  - Dizziness [Unknown]

NARRATIVE: CASE EVENT DATE: 20170621
